FAERS Safety Report 4282459-6 (Version None)
Quarter: 2004Q1

REPORT INFORMATION
  Report Type: 
  Country: None (occurrence: None)
  Receive Date: 20040120
  Receipt Date: 20031007
  Transmission Date: 20041129
  Serious: Yes (Hospitalization)
  Sender: FDA-Public Use
  Company Number: 03P-163-0235043-00

PATIENT
  Age: 2 Year
  Sex: Female
  Weight: 11.3399 kg

DRUGS (2)
  1. OMNICEF [Suspect]
     Indication: EAR INFECTION
     Dosage: 0.75 TEASPOON, 1 IN 1 D, PER ORAL
     Route: 048
     Dates: start: 20030923
  2. MONTELUKAST SODIUM [Concomitant]

REACTIONS (1)
  - ASTHMA [None]
